FAERS Safety Report 12963778 (Version 1)
Quarter: 2016Q4

REPORT INFORMATION
  Report Type: Spontaneous
  Country: US (occurrence: US)
  Receive Date: 20161122
  Receipt Date: 20161122
  Transmission Date: 20170207
  Serious: No
  Sender: FDA-Public Use
  Company Number: US-GLAXOSMITHKLINE-US2016168899

PATIENT
  Age: 72 Year
  Sex: Male

DRUGS (2)
  1. FLONASE [Suspect]
     Active Substance: FLUTICASONE PROPIONATE
     Indication: NASAL CONGESTION
     Dosage: UNK, ONE SPRAY PER NOSTRIL
     Dates: start: 20161009
  2. FLONASE [Suspect]
     Active Substance: FLUTICASONE PROPIONATE
     Dosage: UNK, 2 SPRAYS PER NOSTRIL
     Dates: start: 201610, end: 20161019

REACTIONS (2)
  - Off label use [Unknown]
  - Drug ineffective [Unknown]
